FAERS Safety Report 4810969-9 (Version None)
Quarter: 2005Q4

REPORT INFORMATION
  Report Type: 
  Country: None (occurrence: None)
  Receive Date: 20051025
  Receipt Date: 20051017
  Transmission Date: 20060501
  Serious: Yes (Death, Other)
  Sender: FDA-Public Use
  Company Number: 2005-US-00645

PATIENT
  Age: 70 Year
  Sex: Female

DRUGS (1)
  1. CLOZAPINE [Suspect]
     Indication: SCHIZOPHRENIA
     Dosage: 300 MG, QD, ORAL
     Route: 048
     Dates: start: 20000201, end: 20051001

REACTIONS (1)
  - MYOCARDIAL INFARCTION [None]
